FAERS Safety Report 7028428-4 (Version None)
Quarter: 2010Q4

REPORT INFORMATION
  Report Type: 
  Country: None (occurrence: None)
  Receive Date: 20101005
  Receipt Date: 20100923
  Transmission Date: 20110411
  Serious: Yes (Other)
  Sender: FDA-Public Use
  Company Number: GB-ROCHE-729704

PATIENT
  Sex: Female

DRUGS (2)
  1. TOCILIZUMAB [Suspect]
     Indication: PRODUCT USED FOR UNKNOWN INDICATION
     Route: 065
     Dates: start: 20090801
  2. TOCILIZUMAB [Suspect]
     Route: 065
     Dates: start: 20090901

REACTIONS (2)
  - CARDIAC FAILURE [None]
  - RENAL IMPAIRMENT [None]
